FAERS Safety Report 9003699 (Version 1)
Quarter: 2013Q1

REPORT INFORMATION
  Report Type: Spontaneous
  Country: US (occurrence: US)
  Receive Date: 20130108
  Receipt Date: 20130108
  Transmission Date: 20140127
  Serious: No
  Sender: FDA-Public Use
  Company Number: US-GLAXOSMITHKLINE-A0963130A

PATIENT
  Age: 81 Year
  Sex: Female

DRUGS (4)
  1. LOVAZA [Suspect]
     Indication: BLOOD TRIGLYCERIDES INCREASED
     Dosage: 1G PER DAY
     Route: 048
     Dates: start: 201104
  2. AVAPRO [Concomitant]
  3. NORVASC [Concomitant]
  4. DIURETIC [Concomitant]

REACTIONS (10)
  - Pain [Recovering/Resolving]
  - Burning sensation [Recovering/Resolving]
  - Paraesthesia [Recovering/Resolving]
  - Eructation [Recovering/Resolving]
  - Abdominal pain upper [Recovering/Resolving]
  - Food poisoning [Recovering/Resolving]
  - Dizziness [Recovering/Resolving]
  - Nausea [Recovering/Resolving]
  - Decreased appetite [Recovering/Resolving]
  - Product quality issue [Unknown]
